FAERS Safety Report 8974438 (Version 3)
Quarter: 2015Q2

REPORT INFORMATION
  Report Type: Spontaneous
  Country: US (occurrence: None)
  Receive Date: 20121212
  Receipt Date: 20150511
  Transmission Date: 20150821
  Serious: Yes (Death, Hospitalization)
  Sender: FDA-Public Use
  Company Number: 2012AL000098

PATIENT
  Age: 81 Year
  Sex: Male
  Weight: 80.1 kg

DRUGS (2)
  1. BEXAROTENE [Suspect]
     Active Substance: BEXAROTENE
     Indication: MYCOSIS FUNGOIDES
     Dates: start: 20121018, end: 20121108
  2. PRALATREXATE [Suspect]
     Active Substance: PRALATREXATE
     Indication: MYCOSIS FUNGOIDES
     Dates: start: 20121018, end: 20121101

REACTIONS (5)
  - Lung infection [None]
  - Skin infection [None]
  - Cellulitis [None]
  - Pneumonia [None]
  - Respiratory failure [None]

NARRATIVE: CASE EVENT DATE: 20121108
